FAERS Safety Report 13109071 (Version 1)
Quarter: 2017Q1

REPORT INFORMATION
  Report Type: Spontaneous
  Country: None (occurrence: US)
  Receive Date: 20170112
  Receipt Date: 20170112
  Transmission Date: 20170428
  Serious: No
  Sender: FDA-Public Use
  Company Number: None

PATIENT

DRUGS (1)
  1. MYRBETRIQ [Suspect]
     Active Substance: MIRABEGRON
     Indication: URINARY INCONTINENCE
     Dosage: ?          QUANTITY:I, TFLGLEL;?
     Route: 048

REACTIONS (3)
  - Rash [None]
  - Lip disorder [None]
  - Pruritus [None]

NARRATIVE: CASE EVENT DATE: 20161228
